FAERS Safety Report 7945740-2 (Version None)
Quarter: 2011Q4

REPORT INFORMATION
  Report Type: 
  Country: None (occurrence: None)
  Receive Date: 20111129
  Receipt Date: 20111116
  Transmission Date: 20120403
  Serious: Yes (Hospitalization, Disabling, Other)
  Sender: FDA-Public Use
  Company Number: US-ELI_LILLY_AND_COMPANY-US200811002876

PATIENT
  Sex: Female

DRUGS (36)
  1. THERA-GESIC [Concomitant]
     Route: 061
  2. HYDROCODONE [Concomitant]
  3. ROZEREM [Concomitant]
  4. CYMBALTA [Suspect]
     Dosage: 90 MG, DAILY (1/D)
     Dates: end: 20080801
  5. GABAPENTIN [Concomitant]
  6. GOLD SEAL ANTISEPTIC POWDER [Concomitant]
  7. MEDROL [Concomitant]
     Dosage: 4 MG, EACH MORNING
  8. AMITIZA [Concomitant]
     Dosage: 8 UG, 2/D
  9. EVAMIST [Concomitant]
     Dosage: 1.53 MG, DAILY (1/D)
  10. CYMBALTA [Suspect]
     Indication: DEPRESSION
     Dosage: 60 MG, UNK
     Dates: start: 20060515
  11. CYMBALTA [Suspect]
     Dosage: 60 MG, DAILY (1/D)
     Dates: start: 20080401, end: 20080814
  12. CYMBALTA [Suspect]
     Dosage: 90 MG, DAILY (1/D)
  13. SOMA [Concomitant]
  14. LORTAB [Concomitant]
  15. MULTI-VITAMIN [Concomitant]
  16. PERCODAN                           /00090001/ [Concomitant]
  17. HYZAAR [Concomitant]
  18. POTASSIUM ACETATE [Concomitant]
  19. CYMBALTA [Suspect]
     Dosage: 30 MG, DAILY (1/D)
     Dates: start: 20080201, end: 20080101
  20. LEVOTHYROXINE SODIUM [Concomitant]
  21. AMITRIPTYLINE HCL [Concomitant]
  22. PERCOCET [Concomitant]
  23. DURAGESIC-100 [Concomitant]
  24. VALIUM [Concomitant]
  25. ALBUTEROL [Concomitant]
  26. PROZAC [Concomitant]
     Dosage: 40 MG, EACH MORNING
     Route: 048
  27. LEVOXYL [Concomitant]
  28. SINGULAIR [Concomitant]
  29. PROVENTIL-HFA [Concomitant]
  30. ADVAIR DISKUS 100/50 [Concomitant]
  31. OXYCODONE HCL [Concomitant]
  32. PRENATAL [Concomitant]
     Dosage: UNK
  33. RAMELTEON [Concomitant]
  34. POTASSIUM CHLORIDE [Concomitant]
  35. VITAMIN B COMPLEX CAP [Concomitant]
  36. DILAUDID [Concomitant]
     Dosage: 4 MG, UNK
     Route: 048

REACTIONS (39)
  - LOSS OF CONSCIOUSNESS [None]
  - ALANINE AMINOTRANSFERASE INCREASED [None]
  - PNEUMONIA [None]
  - CONVULSION [None]
  - DIZZINESS [None]
  - HAEMATOMA [None]
  - ABDOMINAL PAIN [None]
  - GASTROINTESTINAL DISORDER [None]
  - CHROMATURIA [None]
  - HEADACHE [None]
  - MEDICATION ERROR [None]
  - ASPARTATE AMINOTRANSFERASE INCREASED [None]
  - DRUG INEFFECTIVE [None]
  - ASTHENIA [None]
  - JOINT INSTABILITY [None]
  - RENAL FAILURE [None]
  - HEMIPARESIS [None]
  - FALL [None]
  - BACK PAIN [None]
  - LIVER DISORDER [None]
  - MUSCLE INJURY [None]
  - NEUROPATHY PERIPHERAL [None]
  - CARDIAC ENZYMES INCREASED [None]
  - RHABDOMYOLYSIS [None]
  - BLOOD ALKALINE PHOSPHATASE INCREASED [None]
  - INJURY [None]
  - ANTINUCLEAR ANTIBODY POSITIVE [None]
  - CONSTIPATION [None]
  - URINE OUTPUT INCREASED [None]
  - OEDEMA PERIPHERAL [None]
  - BLISTER [None]
  - PAIN [None]
  - CHEST DISCOMFORT [None]
  - ARTHRALGIA [None]
  - SYNCOPE [None]
  - DISABILITY [None]
  - LUNG DISORDER [None]
  - YELLOW SKIN [None]
  - GAIT DISTURBANCE [None]
